FAERS Safety Report 15942426 (Version 2)
Quarter: 2019Q1

REPORT INFORMATION
  Report Type: Spontaneous
  Country: NL (occurrence: NL)
  Receive Date: 20190209
  Receipt Date: 20190211
  Transmission Date: 20190417
  Serious: Yes (Other)
  Sender: FDA-Public Use
  Company Number: NL-TEVA-2019-NL-1009384

PATIENT
  Age: 59 Year
  Sex: Female
  Weight: 53 kg

DRUGS (9)
  1. ALVESCO [Concomitant]
     Active Substance: CICLESONIDE
     Dosage: 2DD2
  2. HCT 12.5MG [Concomitant]
     Dosage: 12 MILLIGRAM DAILY; 1DD1
  3. SIMVASTATINE 10MG [Concomitant]
     Dosage: 10 MILLIGRAM DAILY; 1DD1
  4. PREDNISON 5MG [Concomitant]
     Active Substance: PREDNISONE
     Dosage: 5 MILLIGRAM DAILY; 1 DD 1
  5. BERODUAL [Concomitant]
     Active Substance: FENOTEROL HYDROBROMIDE\IPRATROPIUM BROMIDE
     Dosage: ZN, TODAY HAD 2DD2
  6. SERETIDE [Concomitant]
     Active Substance: FLUTICASONE PROPIONATE\SALMETEROL XINAFOATE
     Dosage: 2DD1
  7. SPIRIVA [Concomitant]
     Active Substance: TIOTROPIUM BROMIDE MONOHYDRATE
     Dosage: 2 DOSAGE FORMS DAILY; 1DD2
  8. MOXIFLOXACINE  FILMOMHULDE TABLET, 400 MG (MILLIGRAM) [Suspect]
     Active Substance: MOXIFLOXACIN
     Indication: CHRONIC OBSTRUCTIVE PULMONARY DISEASE
     Dosage: 400 MILLIGRAM DAILY; 400MG 1DD1
     Dates: start: 20181011, end: 20181011
  9. FOSINOPRIL 10MG [Concomitant]
     Dosage: 10 MILLIGRAM DAILY; 1DD1

REACTIONS (4)
  - Electrocardiogram ST segment elevation [Unknown]
  - Electrocardiogram Q waves [Unknown]
  - Sinus tachycardia [Unknown]
  - Myocardial necrosis marker increased [Unknown]

NARRATIVE: CASE EVENT DATE: 20181011
